FAERS Safety Report 7757176-8 (Version None)
Quarter: 2011Q3

REPORT INFORMATION
  Report Type: 
  Country: None (occurrence: None)
  Receive Date: 20110916
  Receipt Date: 20110913
  Transmission Date: 20111222
  Serious: Yes (Death, Hospitalization)
  Sender: FDA-Public Use
  Company Number: PHHO2011GB07852

PATIENT

DRUGS (6)
  1. ALLOPURINOL [Suspect]
  2. SOMATULINE DEPOT [Suspect]
  3. OMEPRAZOLE [Suspect]
  4. NO TREATMENT RECEIVED [Suspect]
     Indication: NEUROENDOCRINE TUMOUR
     Dosage: NO TREATMENT
     Route: 048
  5. ONDANSETRON [Concomitant]
  6. CREON [Concomitant]

REACTIONS (2)
  - NEOPLASM PROGRESSION [None]
  - NEOPLASM MALIGNANT [None]
